FAERS Safety Report 7655583-5 (Version None)
Quarter: 2011Q3

REPORT INFORMATION
  Report Type: 
  Country: None (occurrence: None)
  Receive Date: 20110804
  Receipt Date: 20110729
  Transmission Date: 20111222
  Serious: Yes (Life-Threatening, Hospitalization, Disabling, Other)
  Sender: FDA-Public Use
  Company Number: PHHY2011BR68908

PATIENT
  Sex: Male

DRUGS (6)
  1. DIOVAN HCT [Suspect]
     Indication: HYPERTENSION
     Dosage: 160 OF VALSARTAN AND 12.5 OF HYDROCHLOROTHIAZIDE, DAILY
     Route: 048
     Dates: start: 20090101, end: 20110301
  2. BACLOFEN [Concomitant]
     Dosage: 3 TABLETS OF 10 MG, DAILY
     Route: 048
  3. VIVACOR [Concomitant]
     Dosage: ONE TABLET OF 10 MG THREE TIMES A WEEK
     Route: 048
  4. DIOVAN [Suspect]
     Indication: HYPERTENSION
     Dosage: 1 DF, DAILY
     Route: 048
     Dates: end: 20090101
  5. GABAPENTIN [Concomitant]
     Dosage: 2 TABLETS OF GABAPENTIN, DAILY
     Route: 048
  6. VENLAFAXINE [Concomitant]
     Dosage: 37.5 MG OF VENLAFAXIN, DAILY
     Route: 048

REACTIONS (9)
  - BLOOD PRESSURE INCREASED [None]
  - HEMIPLEGIA [None]
  - APHASIA [None]
  - CEREBROVASCULAR ACCIDENT [None]
  - AGRAPHIA [None]
  - GAIT DISTURBANCE [None]
  - ANEURYSM [None]
  - CAROTID ARTERY THROMBOSIS [None]
  - COMA [None]
